FAERS Safety Report 22606497 (Version 1)
Quarter: 2023Q2

REPORT INFORMATION
  Report Type: Spontaneous
  Country: US (occurrence: US)
  Receive Date: 20230615
  Receipt Date: 20230615
  Transmission Date: 20230721
  Serious: No
  Sender: FDA-Public Use
  Company Number: US-ABBVIE-5287393

PATIENT
  Age: 81 Year
  Sex: Female

DRUGS (1)
  1. RESTASIS [Suspect]
     Active Substance: CYCLOSPORINE
     Indication: Dry eye
     Dosage: FIRST ADMIN DATE: JUN-2023, LAST ADMINISTRATION DATE: JUN-2023, DURATION- 4 DAYS
     Route: 047

REACTIONS (2)
  - Drug hypersensitivity [Not Recovered/Not Resolved]
  - Eyelid irritation [Not Recovered/Not Resolved]

NARRATIVE: CASE EVENT DATE: 20230601
